FAERS Safety Report 4905590-8 (Version None)
Quarter: 2006Q1

REPORT INFORMATION
  Report Type: 
  Country: None (occurrence: None)
  Receive Date: 20060113
  Receipt Date: 20051122
  Transmission Date: 20060701
  Serious: No
  Sender: FDA-Public Use
  Company Number: 2005SP004136

PATIENT
  Age: 52 Year
  Sex: Female
  Weight: 75.7507 kg

DRUGS (3)
  1. LUNESTA [Suspect]
     Dosage: 2 MG;HS;ORAL ; 4 MG;HS;ORAL ; 6 MG;HS;ORAL
     Route: 047
     Dates: start: 20050101, end: 20050101
  2. LUNESTA [Suspect]
     Dosage: 2 MG;HS;ORAL ; 4 MG;HS;ORAL ; 6 MG;HS;ORAL
     Route: 047
     Dates: start: 20050701, end: 20050101
  3. LUNESTA [Suspect]
     Dosage: 2 MG;HS;ORAL ; 4 MG;HS;ORAL ; 6 MG;HS;ORAL
     Route: 047
     Dates: start: 20050101

REACTIONS (2)
  - DRUG INEFFECTIVE [None]
  - INSOMNIA [None]
